FAERS Safety Report 6654706-4 (Version None)
Quarter: 2010Q1

REPORT INFORMATION
  Report Type: 
  Country: None (occurrence: None)
  Receive Date: 20100326
  Receipt Date: 20100317
  Transmission Date: 20100710
  Serious: Yes (Other)
  Sender: FDA-Public Use
  Company Number: GB-GENENTECH-299557

PATIENT
  Age: 30 Year
  Sex: Female
  Weight: 65.6 kg

DRUGS (4)
  1. PULMOZYME [Suspect]
     Indication: CYSTIC FIBROSIS
     Dosage: 2.5 MG, UNK
     Route: 055
     Dates: start: 20100115, end: 20100115
  2. FLOXACILLIN SODIUM [Concomitant]
     Indication: CYSTIC FIBROSIS
     Dosage: 1 G, UNK
     Route: 048
     Dates: start: 20100101
  3. MONTELUKAST SODIUM [Concomitant]
     Indication: CYSTIC FIBROSIS
     Dosage: 10 MG, UNK
     Route: 048
     Dates: start: 20100101
  4. OMEPRAZOLE [Concomitant]
     Indication: CYSTIC FIBROSIS
     Dosage: 20 MG, UNK
     Route: 048
     Dates: start: 20100101

REACTIONS (2)
  - GRAND MAL CONVULSION [None]
  - URINARY INCONTINENCE [None]
